FAERS Safety Report 9633846 (Version 1)
Quarter: 2013Q4

REPORT INFORMATION
  Report Type: Spontaneous
  Country: PT (occurrence: None)
  Receive Date: 20131017
  Receipt Date: 20131017
  Transmission Date: 20140711
  Serious: Yes (Hospitalization, Other)
  Sender: FDA-Public Use
  Company Number: VAL_02770_2013

PATIENT
  Age: 75 Year
  Sex: Male

DRUGS (7)
  1. BROMOCRIPTINE [Suspect]
     Indication: PRODUCT USED FOR UNKNOWN INDICATION
  2. METHYSERGIDE MALEATE [Suspect]
     Indication: PRODUCT USED FOR UNKNOWN INDICATION
  3. ERGOTAMINE [Suspect]
     Indication: PRODUCT USED FOR UNKNOWN INDICATION
     Dosage: DF [REGIMEN #1]
  4. TAMSULOSIN [Concomitant]
  5. LEVODOPA/CARBIDOPA [Concomitant]
  6. AMANTADINE [Concomitant]
  7. ALPRAZOLAM [Concomitant]

REACTIONS (5)
  - Pleural effusion [None]
  - Syncope [None]
  - Dyspnoea [None]
  - Respiratory distress [None]
  - Pulmonary fibrosis [None]
